FAERS Safety Report 5630643-9 (Version None)
Quarter: 2008Q1

REPORT INFORMATION
  Report Type: 
  Country: None (occurrence: None)
  Receive Date: 20080213
  Receipt Date: 20080204
  Transmission Date: 20080703
  Serious: Yes (Death)
  Sender: FDA-Public Use
  Company Number: 2008-01019

PATIENT
  Age: 25 Year
  Sex: Female

DRUGS (5)
  1. CLONIDINE [Suspect]
  2. OLMESARTAN(OLMESARTAN) [Suspect]
  3. PREGABALIN() [Suspect]
  4. NITROGLYCERIN ^SLOVAKOFARMA^(GLYCERYL TRINITRATE) [Suspect]
  5. EZETIMIBE [Suspect]

REACTIONS (1)
  - CARDIO-RESPIRATORY ARREST [None]
